FAERS Safety Report 6453207-6 (Version None)
Quarter: 2009Q4

REPORT INFORMATION
  Report Type: 
  Country: None (occurrence: None)
  Receive Date: 20091123
  Receipt Date: 20091123
  Transmission Date: 20100525
  Serious: No
  Sender: FDA-Public Use
  Company Number: None

PATIENT
  Sex: Female
  Weight: 89.8122 kg

DRUGS (1)
  1. MIRENA [Suspect]
     Indication: CONTRACEPTION
     Dosage: STANDARD INSERTION LEVELS
     Dates: start: 20081215, end: 20091101

REACTIONS (3)
  - ACNE [None]
  - MOOD ALTERED [None]
  - WEIGHT INCREASED [None]
